FAERS Safety Report 17881606 (Version 2)
Quarter: 2020Q2

REPORT INFORMATION
  Report Type: Spontaneous
  Country: US (occurrence: US)
  Receive Date: 20200610
  Receipt Date: 20200611
  Transmission Date: 20200714
  Serious: No
  Sender: FDA-Public Use
  Company Number: US-SA-2020SA143546

PATIENT

DRUGS (1)
  1. LANTUS SOLOSTAR [Suspect]
     Active Substance: INSULIN GLARGINE
     Dosage: 30 IU, TID
     Route: 065
     Dates: start: 202005

REACTIONS (4)
  - Inappropriate schedule of product administration [Unknown]
  - Blood glucose increased [Unknown]
  - Device operational issue [Unknown]
  - Circumstance or information capable of leading to medication error [Unknown]
